FAERS Safety Report 8871766 (Version 1)
Quarter: 2012Q4

REPORT INFORMATION
  Report Type: 
  Country: US (occurrence: US)
  Receive Date: 20121023
  Receipt Date: 20121023
  Transmission Date: 20130627
  Serious: No
  Sender: FDA-Public Use
  Company Number: US-ASTELLAS-2012US006874

PATIENT

DRUGS (1)
  1. PROGRAF [Suspect]
     Indication: IMMUNOSUPPRESSANT DRUG THERAPY
     Dosage: UNK
     Route: 065

REACTIONS (7)
  - Drug dose omission [Unknown]
  - Headache [Unknown]
  - Asthenia [Unknown]
  - Feeling abnormal [Unknown]
  - Urinary tract infection [Unknown]
  - Feeling cold [Unknown]
  - Hypoaesthesia [Unknown]
